FAERS Safety Report 6159758-6 (Version None)
Quarter: 2009Q2

REPORT INFORMATION
  Report Type: 
  Country: None (occurrence: None)
  Receive Date: 20090420
  Receipt Date: 20090409
  Transmission Date: 20091009
  Serious: Yes (Hospitalization)
  Sender: FDA-Public Use
  Company Number: US-BIOGENIDEC-2009BI008264

PATIENT
  Age: 46 Year
  Sex: Male
  Weight: 68 kg

DRUGS (5)
  1. AVONEX [Suspect]
     Indication: MULTIPLE SCLEROSIS
     Route: 030
     Dates: start: 20070101
  2. AVONEX [Suspect]
     Route: 030
     Dates: start: 20090116
  3. SEROQUEL [Concomitant]
     Indication: DRUG USE FOR UNKNOWN INDICATION
  4. PRIMIDONE [Concomitant]
     Indication: TREMOR
  5. PRIMIDONE [Concomitant]

REACTIONS (10)
  - ALCOHOLISM [None]
  - COMA [None]
  - DEPRESSION [None]
  - DISTRACTIBILITY [None]
  - DRUG ABUSE [None]
  - DYSGRAPHIA [None]
  - DYSPHEMIA [None]
  - MIGRAINE [None]
  - SUICIDE ATTEMPT [None]
  - TREMOR [None]
